FAERS Safety Report 23920254 (Version 1)
Quarter: 2024Q2

REPORT INFORMATION
  Report Type: Report from Study
  Country: CA (occurrence: CA)
  Receive Date: 20240530
  Receipt Date: 20240530
  Transmission Date: 20240716
  Serious: Yes (Hospitalization, Other)
  Sender: FDA-Public Use
  Company Number: CA-GLAXOSMITHKLINE-CA2024022492

PATIENT

DRUGS (2)
  1. BELIMUMAB [Suspect]
     Active Substance: BELIMUMAB
     Indication: Product used for unknown indication
     Dosage: 400 MG, WE
     Route: 058
     Dates: start: 20190628
  2. BELIMUMAB [Suspect]
     Active Substance: BELIMUMAB
     Dosage: 200 MG, WE
     Route: 058

REACTIONS (17)
  - Brain operation [Unknown]
  - Parathyroid disorder [Unknown]
  - Illness [Not Recovered/Not Resolved]
  - Blood pressure increased [Not Recovered/Not Resolved]
  - Fatigue [Not Recovered/Not Resolved]
  - Rash [Not Recovered/Not Resolved]
  - Pain in extremity [Not Recovered/Not Resolved]
  - Arterial occlusive disease [Not Recovered/Not Resolved]
  - Infection [Not Recovered/Not Resolved]
  - Systemic lupus erythematosus [Not Recovered/Not Resolved]
  - Hypoaesthesia [Not Recovered/Not Resolved]
  - Aortic aneurysm [Not Recovered/Not Resolved]
  - Gait disturbance [Not Recovered/Not Resolved]
  - Arterial occlusive disease [Unknown]
  - Hepatic steatosis [Not Recovered/Not Resolved]
  - Rosacea [Unknown]
  - Drug ineffective [Unknown]
